FAERS Safety Report 5289270-8 (Version None)
Quarter: 2007Q2

REPORT INFORMATION
  Report Type: 
  Country: None (occurrence: None)
  Receive Date: 20070403
  Receipt Date: 20070403
  Transmission Date: 20071010
  Serious: Yes (Hospitalization)
  Sender: FDA-Public Use
  Company Number: None

PATIENT
  Sex: Male
  Weight: 127 kg

DRUGS (2)
  1. ZOSYN [Suspect]
     Indication: INFECTION
     Dosage: 2.25 GM  Q6H   IV
     Route: 042
     Dates: start: 20070307, end: 20070312
  2. ALLOPURINOL [Suspect]
     Indication: HYPERURICAEMIA
     Dosage: 300 MG  DAILY  PO
     Route: 048
     Dates: start: 20070305, end: 20070312

REACTIONS (2)
  - ALANINE AMINOTRANSFERASE INCREASED [None]
  - ASPARTATE AMINOTRANSFERASE INCREASED [None]
